FAERS Safety Report 16808385 (Version 1)
Quarter: 2019Q3

REPORT INFORMATION
  Report Type: Spontaneous
  Country: IN (occurrence: IN)
  Receive Date: 20190916
  Receipt Date: 20190916
  Transmission Date: 20191005
  Serious: Yes (Other)
  Sender: FDA-Public Use
  Company Number: IN-BRISTOL-MYERS SQUIBB COMPANY-BMS-2019-087777

PATIENT
  Age: 55 Year
  Sex: Female

DRUGS (2)
  1. TRIAMCINOLONE ACETONIDE. [Suspect]
     Active Substance: TRIAMCINOLONE ACETONIDE
     Indication: KELOID SCAR
     Dosage: UNK
     Route: 026
  2. FLUOROURACIL. [Suspect]
     Active Substance: FLUOROURACIL
     Indication: KELOID SCAR
     Dosage: UNK
     Route: 026

REACTIONS (2)
  - Dermatophytosis [Recovering/Resolving]
  - Intentional product use issue [Unknown]
